FAERS Safety Report 6100659-7 (Version None)
Quarter: 2009Q1

REPORT INFORMATION
  Report Type: 
  Country: None (occurrence: None)
  Receive Date: 20090303
  Receipt Date: 20090219
  Transmission Date: 20090719
  Serious: Yes (Other)
  Sender: FDA-Public Use
  Company Number: BE-WYE-G03165109

PATIENT
  Age: 57 Year
  Sex: Male

DRUGS (2)
  1. EFFEXOR [Suspect]
     Route: 048
  2. RISPERDAL [Concomitant]
     Route: 048

REACTIONS (1)
  - HEPATOTOXICITY [None]
